FAERS Safety Report 5530136-3 (Version None)
Quarter: 2007Q4

REPORT INFORMATION
  Report Type: 
  Country: None (occurrence: None)
  Receive Date: 20071130
  Receipt Date: 20071120
  Transmission Date: 20080405
  Serious: Yes (Hospitalization)
  Sender: FDA-Public Use
  Company Number: PHHO2007AU19218

PATIENT
  Age: 70 Year
  Sex: Male

DRUGS (2)
  1. RAD [Suspect]
     Indication: NON-SMALL CELL LUNG CANCER
     Dosage: 5 MG, UNK
     Route: 048
     Dates: start: 20071003, end: 20071101
  2. LETROZOLE [Suspect]
     Indication: NON-SMALL CELL LUNG CANCER
     Dosage: 2.5 MG, UNK
     Route: 048
     Dates: start: 20071003, end: 20071101

REACTIONS (5)
  - DYSPNOEA [None]
  - HYPOXIA [None]
  - PNEUMONITIS [None]
  - PYREXIA [None]
  - RESPIRATORY FAILURE [None]
